FAERS Safety Report 7824707-9 (Version None)
Quarter: 2011Q4

REPORT INFORMATION
  Report Type: 
  Country: None (occurrence: None)
  Receive Date: 20111019
  Receipt Date: 20111010
  Transmission Date: 20120403
  Serious: Yes (Other)
  Sender: FDA-Public Use
  Company Number: PHHY2011IT91226

PATIENT
  Age: 70 Year
  Sex: Female

DRUGS (2)
  1. CARBAMAZEPINE [Suspect]
  2. CELEBREX [Interacting]

REACTIONS (2)
  - DRUG INTERACTION [None]
  - ANAPHYLACTIC SHOCK [None]
